FAERS Safety Report 8996260 (Version 1)
Quarter: 2013Q1

REPORT INFORMATION
  Report Type: Spontaneous
  Country: CN (occurrence: CN)
  Receive Date: 20130103
  Receipt Date: 20130103
  Transmission Date: 20140127
  Serious: Yes (Other)
  Sender: FDA-Public Use
  Company Number: PHHY2012CN121658

PATIENT
  Age: 54 Year
  Sex: Female
  Weight: 69 kg

DRUGS (1)
  1. MIACALCIC [Suspect]
     Indication: OSTEOPOROSIS
     Dosage: 50 IU,ONCE DAILY
     Route: 030
     Dates: start: 20090716, end: 20090716

REACTIONS (3)
  - Convulsion [Recovering/Resolving]
  - Muscle twitching [Recovering/Resolving]
  - Pallor [Recovering/Resolving]
